FAERS Safety Report 10357704 (Version 1)
Quarter: 2014Q3

REPORT INFORMATION
  Report Type: Spontaneous
  Country: FR (occurrence: None)
  Receive Date: 20140730
  Receipt Date: 20140730
  Transmission Date: 20150326
  Serious: Yes (Life-Threatening, Hospitalization)
  Sender: FDA-Public Use
  Company Number: None

PATIENT
  Age: 61 Year
  Sex: Female
  Weight: 70 kg

DRUGS (1)
  1. METOJECT [Suspect]
     Active Substance: METHOTREXATE SODIUM
     Indication: RHEUMATOID ARTHRITIS
     Dosage: 1 INJECTION A WEEK, ONCE A WEEK, INTO THE MUSCLE

REACTIONS (2)
  - Lip and/or oral cavity cancer [None]
  - Stomatitis [None]

NARRATIVE: CASE EVENT DATE: 20140514
